FAERS Safety Report 5638117-6 (Version None)
Quarter: 2008Q1

REPORT INFORMATION
  Report Type: 
  Country: None (occurrence: None)
  Receive Date: 20080221
  Receipt Date: 20080207
  Transmission Date: 20080703
  Serious: Yes (Other)
  Sender: FDA-Public Use
  Company Number: 2008S1001452

PATIENT
  Age: 58 Year
  Sex: Female
  Weight: 65.7716 kg

DRUGS (4)
  1. METOPROLOL TARTRATE [Suspect]
     Indication: HEART RATE IRREGULAR
     Dosage: 50 MG;TWICE A DAY;ORAL
     Route: 048
     Dates: start: 20080104, end: 20080108
  2. METOPROLOL TARTRATE [Suspect]
     Indication: HYPERTENSION
     Dosage: 50 MG;TWICE A DAY;ORAL
     Route: 048
     Dates: start: 20080104, end: 20080108
  3. MOBIC [Concomitant]
  4. ATIVAN [Concomitant]

REACTIONS (8)
  - BLOOD PRESSURE INCREASED [None]
  - CHEST DISCOMFORT [None]
  - DRUG INEFFECTIVE [None]
  - EAR DISCOMFORT [None]
  - HEADACHE [None]
  - HEART RATE INCREASED [None]
  - MALAISE [None]
  - PALPITATIONS [None]
